FAERS Safety Report 11302925 (Version 3)
Quarter: 2015Q3

REPORT INFORMATION
  Report Type: Spontaneous
  Country: US (occurrence: US)
  Receive Date: 20150723
  Receipt Date: 20150817
  Transmission Date: 20151125
  Serious: Yes (Hospitalization, Disabling, Other)
  Sender: FDA-Public Use
  Company Number: US-PFIZER INC-2015241411

PATIENT
  Age: 50 Year
  Sex: Female
  Weight: 91 kg

DRUGS (11)
  1. GABAPENTIN. [Suspect]
     Active Substance: GABAPENTIN
     Indication: NEUROPATHY PERIPHERAL
     Dosage: UNK
     Dates: start: 2005
  2. CYMBALTA [Suspect]
     Active Substance: DULOXETINE HYDROCHLORIDE
     Indication: NEUROPATHY PERIPHERAL
     Dosage: 60 MG, DAILY
     Route: 048
  3. LYRICA [Suspect]
     Active Substance: PREGABALIN
     Dosage: 200 MG, 3X/DAY
     Route: 048
     Dates: start: 20150123, end: 20150126
  4. FISH OIL [Concomitant]
     Active Substance: FISH OIL
     Indication: BLOOD TRIGLYCERIDES INCREASED
  5. NIACIN. [Concomitant]
     Active Substance: NIACIN
     Indication: BLOOD CHOLESTEROL INCREASED
     Dosage: 2000 MG, DAILY
     Route: 048
  6. LYRICA [Suspect]
     Active Substance: PREGABALIN
     Indication: NEUROPATHY PERIPHERAL
     Dosage: 600 MG, DAILY
     Route: 048
     Dates: start: 2005
  7. GABAPENTIN. [Suspect]
     Active Substance: GABAPENTIN
     Dosage: 600 MG, 3X/DAY
     Route: 048
     Dates: start: 20150129
  8. CYMBALTA [Suspect]
     Active Substance: DULOXETINE HYDROCHLORIDE
     Indication: PAIN
  9. TRAMADOL. [Concomitant]
     Active Substance: TRAMADOL
     Indication: NEUROPATHY PERIPHERAL
     Dosage: 100 MG, 3X/DAY (50 MG 2 TID)
     Route: 048
  10. FISH OIL [Concomitant]
     Active Substance: FISH OIL
     Indication: BLOOD CHOLESTEROL INCREASED
     Dosage: 2400 MG, DAILY
     Route: 048
  11. NIACIN. [Concomitant]
     Active Substance: NIACIN
     Indication: BLOOD TRIGLYCERIDES INCREASED

REACTIONS (24)
  - Disease progression [Unknown]
  - Drug ineffective [Unknown]
  - Hypoaesthesia [Unknown]
  - Feeling hot [Unknown]
  - Foot deformity [Unknown]
  - Breakthrough pain [Unknown]
  - Erythema [Unknown]
  - Localised infection [Unknown]
  - Skin ulcer [Unknown]
  - Rash erythematous [Recovered/Resolved]
  - Glucose tolerance impaired [Unknown]
  - Foot deformity [Unknown]
  - Nausea [Not Recovered/Not Resolved]
  - Tendon disorder [Recovered/Resolved]
  - Pain in extremity [Unknown]
  - Hypertension [Unknown]
  - Memory impairment [Unknown]
  - Arthropathy [Unknown]
  - Neuropathy peripheral [Unknown]
  - Pain [Not Recovered/Not Resolved]
  - Condition aggravated [Not Recovered/Not Resolved]
  - Vomiting [Not Recovered/Not Resolved]
  - Confusional state [Unknown]
  - Activities of daily living impaired [Unknown]

NARRATIVE: CASE EVENT DATE: 2007
